FAERS Safety Report 14765042 (Version 1)
Quarter: 2018Q2

REPORT INFORMATION
  Report Type: Spontaneous
  Country: US (occurrence: US)
  Receive Date: 20180416
  Receipt Date: 20180416
  Transmission Date: 20180711
  Serious: No
  Sender: FDA-Public Use
  Company Number: US-GLAXOSMITHKLINE-US2018063450

PATIENT
  Age: 53 Year
  Sex: Female

DRUGS (10)
  1. CYMBALTA [Concomitant]
     Active Substance: DULOXETINE HYDROCHLORIDE
  2. METHOTREXATE. [Concomitant]
     Active Substance: METHOTREXATE
  3. GABAPENTIN. [Concomitant]
     Active Substance: GABAPENTIN
  4. OMEPRAZOLE. [Concomitant]
     Active Substance: OMEPRAZOLE
  5. PREDNISONE. [Concomitant]
     Active Substance: PREDNISONE
  6. LEVOTHYROXINE. [Concomitant]
     Active Substance: LEVOTHYROXINE
  7. METOPROLOL. [Concomitant]
     Active Substance: METOPROLOL
  8. PLAQUENIL [Concomitant]
     Active Substance: HYDROXYCHLOROQUINE SULFATE
  9. BENLYSTA [Suspect]
     Active Substance: BELIMUMAB
     Indication: PRODUCT USED FOR UNKNOWN INDICATION
     Dosage: UNK UNK, Z
     Route: 041
     Dates: start: 2014
  10. FOLIC ACID. [Concomitant]
     Active Substance: FOLIC ACID

REACTIONS (4)
  - Diplopia [Recovered/Resolved]
  - Drug dose omission [Unknown]
  - Nausea [Unknown]
  - Influenza [Recovered/Resolved]

NARRATIVE: CASE EVENT DATE: 2014
